FAERS Safety Report 6959093-X (Version None)
Quarter: 2010Q3

REPORT INFORMATION
  Report Type: 
  Country: None (occurrence: None)
  Receive Date: 20100831
  Receipt Date: 20100819
  Transmission Date: 20110219
  Serious: Yes (Death)
  Sender: FDA-Public Use
  Company Number: IE-NAPPMUNDI-GBR-2010-0006950

PATIENT
  Sex: Female

DRUGS (1)
  1. OXYNORM LIQUID CONCENTRATE 10 MG/ML [Suspect]
     Indication: PRODUCT USED FOR UNKNOWN INDICATION
     Dosage: 10 MG/ML, UNK

REACTIONS (1)
  - DRUG ADMINISTRATION ERROR [None]
